FAERS Safety Report 13489412 (Version 2)
Quarter: 2017Q2

REPORT INFORMATION
  Report Type: Spontaneous
  Country: GB (occurrence: GB)
  Receive Date: 20170427
  Receipt Date: 20170503
  Transmission Date: 20170830
  Serious: Yes (Death)
  Sender: FDA-Public Use
  Company Number: GB-PFIZER INC-2017180716

PATIENT
  Age: 16 Year
  Sex: Male
  Weight: 67 kg

DRUGS (2)
  1. GENOTROPIN [Suspect]
     Active Substance: SOMATROPIN
     Indication: GROWTH HORMONE DEFICIENCY
     Dosage: 1.6 MG, 1X/DAY
     Route: 058
     Dates: start: 20161012
  2. OMEPRAZOLE. [Concomitant]
     Active Substance: OMEPRAZOLE
     Indication: DYSPEPSIA
     Dosage: 10 MG, 1X/DAY
     Route: 048
     Dates: start: 201501

REACTIONS (1)
  - Death [Fatal]

NARRATIVE: CASE EVENT DATE: 20170424
